FAERS Safety Report 7788231-4 (Version None)
Quarter: 2011Q3

REPORT INFORMATION
  Report Type: 
  Country: None (occurrence: None)
  Receive Date: 20110929
  Receipt Date: 20110929
  Transmission Date: 20111222
  Serious: No
  Sender: FDA-Public Use
  Company Number: None

PATIENT
  Age: 27 Year
  Sex: Female

DRUGS (1)
  1. CLEAN + CLEAR ADVANTAGE 3 IN 1 FOAMING ACNE WASH 8 FL OZ JOHNSON + JOH [Suspect]
     Dates: start: 20110830, end: 20110831

REACTIONS (4)
  - PRURITUS [None]
  - DRY SKIN [None]
  - RASH [None]
  - EYE SWELLING [None]
